FAERS Safety Report 6337144-3 (Version None)
Quarter: 2009Q3

REPORT INFORMATION
  Report Type: 
  Country: None (occurrence: None)
  Receive Date: 20090831
  Receipt Date: 20090813
  Transmission Date: 20100115
  Serious: Yes (Hospitalization)
  Sender: FDA-Public Use
  Company Number: DSA_41535_2009

PATIENT
  Age: 58 Year
  Sex: Male

DRUGS (6)
  1. MONO-TILDIEM (MONO-TILDIEM-SLOW RELEASE-(DILTIAZEM HYDROCHLORIDE) -TAB [Suspect]
     Indication: DRUG USE FOR UNKNOWN INDICATION
     Dosage: (ORAL)
     Route: 048
  2. AMBROXOL (AMBROXOL) [Suspect]
     Indication: BRONCHITIS
     Dosage: (DF ORAL)
     Route: 048
     Dates: start: 20090327, end: 20090504
  3. NISISCO (NISISCO-(VALSARTAN HYDROCHLOROTHIAZIDE)-TABLET) (NOT SPECIFIE [Suspect]
     Indication: DRUG USE FOR UNKNOWN INDICATION
     Dosage: (DF ORAL)
     Route: 048
  4. SERETIDE DISCUS [Concomitant]
  5. SPIRIVA [Concomitant]
  6. XYZAL [Concomitant]

REACTIONS (7)
  - ABDOMINAL WALL HAEMATOMA [None]
  - ARTHROPATHY [None]
  - BRONCHITIS [None]
  - LEUKOCYTOCLASTIC VASCULITIS [None]
  - LUNG DISORDER [None]
  - PURPURA [None]
  - SKIN NECROSIS [None]
